FAERS Safety Report 19540218 (Version 1)
Quarter: 2021Q3

REPORT INFORMATION
  Report Type: Spontaneous
  Country: US (occurrence: US)
  Receive Date: 20210713
  Receipt Date: 20210713
  Transmission Date: 20211014
  Serious: No
  Sender: FDA-Public Use
  Company Number: US-GLENMARK PHARMACEUTICALS-2020GMK049013

PATIENT
  Age: 20 Year
  Sex: Male
  Weight: 61.22 kg

DRUGS (3)
  1. ATOMOXETINE CAPSULES USP [25MG] [Suspect]
     Active Substance: ATOMOXETINE HYDROCHLORIDE
     Indication: ANXIETY
     Dosage: 25 MILLIGRAM, OD
     Route: 048
     Dates: start: 20200723, end: 20200730
  2. ATOMOXETINE CAPSULES USP [25MG] [Suspect]
     Active Substance: ATOMOXETINE HYDROCHLORIDE
     Indication: ATTENTION DEFICIT HYPERACTIVITY DISORDER
     Dosage: 2 DOSAGE FORM, OD
     Route: 048
     Dates: start: 20200730, end: 20200730
  3. ENTOCORT [Concomitant]
     Active Substance: BUDESONIDE
     Indication: PRODUCT USED FOR UNKNOWN INDICATION
     Dosage: UNK
     Route: 065

REACTIONS (1)
  - Vomiting [Recovered/Resolved]

NARRATIVE: CASE EVENT DATE: 20200724
